FAERS Safety Report 18340506 (Version 1)
Quarter: 2020Q4

REPORT INFORMATION
  Report Type: Report from Study
  Country: US (occurrence: US)
  Receive Date: 20201002
  Receipt Date: 20201002
  Transmission Date: 20210113
  Serious: Yes (Hospitalization)
  Sender: FDA-Public Use
  Company Number: US-JNJFOC-20200942368

PATIENT
  Age: 2 Year
  Sex: Male

DRUGS (1)
  1. BOSENTAN. [Suspect]
     Active Substance: BOSENTAN
     Indication: RESPIRATORY DISORDER
     Route: 065
     Dates: start: 20200919

REACTIONS (1)
  - Hospitalisation [Not Recovered/Not Resolved]
